FAERS Safety Report 10423788 (Version 3)
Quarter: 2016Q1

REPORT INFORMATION
  Report Type: Spontaneous
  Country: FR (occurrence: FR)
  Receive Date: 20140902
  Receipt Date: 20160323
  Transmission Date: 20160525
  Serious: Yes (Congenital Anomaly)
  Sender: FDA-Public Use
  Company Number: FR-SA-2014SA114183

PATIENT
  Sex: Male
  Weight: 3.73 kg

DRUGS (6)
  1. INORIAL [Suspect]
     Active Substance: BILASTINE
     Indication: HYPERSENSITIVITY
     Route: 064
     Dates: start: 20140101, end: 20140612
  2. ZOLPIDEM [Suspect]
     Active Substance: ZOLPIDEM\ZOLPIDEM TARTRATE
     Indication: INSOMNIA
     Route: 064
     Dates: start: 20140527, end: 20140607
  3. DONORMYL [Suspect]
     Active Substance: DOXYLAMINE SUCCINATE
     Indication: NAUSEA
     Route: 064
     Dates: start: 201403, end: 201403
  4. BI-PROFENID [Suspect]
     Active Substance: KETOPROFEN
     Indication: TENDONITIS
     Route: 064
     Dates: start: 20140505, end: 20140513
  5. EUPHYTOSE [Suspect]
     Active Substance: HERBALS
     Indication: ANXIETY
     Route: 064
     Dates: start: 20140327, end: 20140403
  6. DUPHASTON [Suspect]
     Active Substance: DYDROGESTERONE
     Indication: MENSTRUATION IRREGULAR
     Dosage: FREQUENCY: 10 DAYS PER MONTH
     Route: 064
     Dates: start: 20140301, end: 20140430

REACTIONS (2)
  - Cleft lip and palate [Not Recovered/Not Resolved]
  - Foetal exposure during pregnancy [Unknown]

NARRATIVE: CASE EVENT DATE: 201406
